FAERS Safety Report 5219390-5 (Version None)
Quarter: 2007Q1

REPORT INFORMATION
  Report Type: 
  Country: None (occurrence: None)
  Receive Date: 20070125
  Receipt Date: 20060309
  Transmission Date: 20070707
  Serious: Yes (Other)
  Sender: FDA-Public Use
  Company Number: US-BRISTOL-MYERS SQUIBB COMPANY-13308887

PATIENT
  Age: 59 Year
  Sex: Female
  Weight: 82 kg

DRUGS (8)
  1. IFOSFAMIDE [Suspect]
     Indication: B-CELL LYMPHOMA
     Route: 042
     Dates: start: 20060222, end: 20060222
  2. MESNA [Concomitant]
     Indication: B-CELL LYMPHOMA
     Route: 042
     Dates: start: 20060222, end: 20060222
  3. ZOFRAN [Concomitant]
     Indication: PREMEDICATION
     Route: 042
     Dates: start: 20060222, end: 20060222
  4. LIPITOR [Concomitant]
  5. LOTREL [Concomitant]
  6. IBUPROFEN [Concomitant]
     Dates: start: 20060222, end: 20060222
  7. ALLOPURINOL SODIUM [Concomitant]
  8. NEURONTIN [Concomitant]

REACTIONS (1)
  - NEUROTOXICITY [None]
